FAERS Safety Report 7356181-3 (Version None)
Quarter: 2011Q1

REPORT INFORMATION
  Report Type: 
  Country: None (occurrence: None)
  Receive Date: 20110316
  Receipt Date: 20110311
  Transmission Date: 20110831
  Serious: Yes (Other)
  Sender: FDA-Public Use
  Company Number: US-PFIZER INC-2011054604

PATIENT
  Sex: Female
  Weight: 68 kg

DRUGS (1)
  1. ROBITUSSIN CHEST CONGESTION [Suspect]
     Indication: BRONCHITIS
     Dosage: UNK
     Route: 048

REACTIONS (5)
  - PRODUCT CONTAMINATION PHYSICAL [None]
  - ABDOMINAL DISCOMFORT [None]
  - CHOKING [None]
  - GASTROOESOPHAGEAL REFLUX DISEASE [None]
  - OROPHARYNGEAL PAIN [None]
